FAERS Safety Report 16838392 (Version 2)
Quarter: 2019Q4

REPORT INFORMATION
  Report Type: Spontaneous
  Country: US (occurrence: US)
  Receive Date: 20190923
  Receipt Date: 20191017
  Transmission Date: 20200122
  Serious: Yes (Other)
  Sender: FDA-Public Use
  Company Number: US-NOVOPROD-685021

PATIENT
  Age: 68 Year
  Sex: Male

DRUGS (2)
  1. HUMALOG [Suspect]
     Active Substance: INSULIN LISPRO
     Indication: TYPE 2 DIABETES MELLITUS
     Dosage: UNK
     Route: 058
  2. LEVEMIR [Suspect]
     Active Substance: INSULIN DETEMIR
     Indication: TYPE 2 DIABETES MELLITUS
     Dosage: 3 IU
     Route: 058
     Dates: start: 201905

REACTIONS (8)
  - Gait disturbance [Recovered/Resolved]
  - Dizziness [Recovered/Resolved]
  - Blood glucose decreased [Recovered/Resolved]
  - Asthenia [Recovered/Resolved]
  - Balance disorder [Recovered/Resolved]
  - Drug hypersensitivity [Unknown]
  - Blood glucose increased [Not Recovered/Not Resolved]
  - Wrong product administered [Unknown]

NARRATIVE: CASE EVENT DATE: 20190908
